FAERS Safety Report 9225222 (Version 1)
Quarter: 2013Q2

REPORT INFORMATION
  Report Type: Spontaneous
  Country: US (occurrence: None)
  Receive Date: 20130410
  Receipt Date: 20130410
  Transmission Date: 20140414
  Serious: Yes (Other)
  Sender: FDA-Public Use
  Company Number: None

PATIENT
  Age: 70 Year
  Sex: Male
  Weight: 111.59 kg

DRUGS (1)
  1. PREVAGEN [Suspect]
     Indication: AMNESIA
     Route: 048
     Dates: start: 20121207, end: 20130404

REACTIONS (1)
  - Grand mal convulsion [None]
